FAERS Safety Report 22013397 (Version 3)
Quarter: 2024Q1

REPORT INFORMATION
  Report Type: Report from Study
  Country: US (occurrence: US)
  Receive Date: 20230220
  Receipt Date: 20240308
  Transmission Date: 20240410
  Serious: Yes (Other)
  Sender: FDA-Public Use
  Company Number: US-JAZZ-2023-US-003860

PATIENT
  Age: 50 Year
  Sex: Female

DRUGS (7)
  1. XYREM [Suspect]
     Active Substance: SODIUM OXYBATE
     Indication: Narcolepsy
     Dosage: 3 GRAM
  2. XYREM [Suspect]
     Active Substance: SODIUM OXYBATE
     Indication: Cataplexy
  3. XYREM [Suspect]
     Active Substance: SODIUM OXYBATE
     Indication: Somnolence
  4. TRAZODONE [Suspect]
     Active Substance: TRAZODONE HYDROCHLORIDE
     Indication: Product used for unknown indication
     Dosage: 50 MILLIGRAM, BID
     Dates: start: 20230707
  5. SAXENDA [Concomitant]
     Active Substance: LIRAGLUTIDE
     Indication: Product used for unknown indication
     Dosage: 18 MG/3 ML PEN
     Dates: start: 20221210
  6. MELOXICAM [Concomitant]
     Active Substance: MELOXICAM
     Indication: Product used for unknown indication
     Dosage: UNK
     Dates: start: 20230201
  7. AMBIEN CR [Concomitant]
     Active Substance: ZOLPIDEM TARTRATE
     Indication: Product used for unknown indication
     Dosage: UNK
     Dates: start: 20230710

REACTIONS (26)
  - Bursitis [Unknown]
  - Spinal compression fracture [Unknown]
  - Hypokalaemia [Not Recovered/Not Resolved]
  - Withdrawal syndrome [Unknown]
  - Micturition urgency [Unknown]
  - Vitamin B12 deficiency [Unknown]
  - Feeling abnormal [Unknown]
  - Fall [Unknown]
  - Weight decreased [Unknown]
  - Head discomfort [Unknown]
  - Ocular discomfort [Unknown]
  - Vitamin D deficiency [Unknown]
  - Muscle spasms [Unknown]
  - Sciatica [Unknown]
  - Magnesium deficiency [Unknown]
  - Hot flush [Unknown]
  - Tendonitis [Unknown]
  - Menstrual disorder [Unknown]
  - Heavy menstrual bleeding [Unknown]
  - Premature menopause [Unknown]
  - Brain fog [Unknown]
  - Osteoporosis [Unknown]
  - Increased appetite [Unknown]
  - Enuresis [Unknown]
  - Product dose omission issue [Unknown]
  - Product administration interrupted [Unknown]

NARRATIVE: CASE EVENT DATE: 20230701
